FAERS Safety Report 18394455 (Version 2)
Quarter: 2020Q4

REPORT INFORMATION
  Report Type: Spontaneous
  Country: DE (occurrence: DE)
  Receive Date: 20201016
  Receipt Date: 20201028
  Transmission Date: 20210114
  Serious: Yes (Life-Threatening, Other)
  Sender: FDA-Public Use
  Company Number: DE-GILEAD-2020-0498478

PATIENT
  Age: 44 Year
  Sex: Female
  Weight: 45 kg

DRUGS (2)
  1. BIKTARVY [Suspect]
     Active Substance: BICTEGRAVIR SODIUM\EMTRICITABINE\TENOFOVIR ALAFENAMIDE FUMARATE
     Indication: HIV INFECTION
     Dosage: HALF TABLET IN MORNING, HALF TABLET IN EVENING
     Route: 065
     Dates: start: 20200803, end: 20201007
  2. CALCIUM FORTE [Concomitant]
     Indication: PROPHYLAXIS
     Dosage: 3 DOSAGE FORM, Q1WK
     Dates: start: 20200803

REACTIONS (6)
  - HIV infection [Unknown]
  - CD4 lymphocytes decreased [Unknown]
  - Intentional product use issue [Recovered/Resolved]
  - Wrong schedule [Recovered/Resolved]
  - Wrong dose [Recovered/Resolved]
  - Wrong technique in product usage process [Recovered/Resolved]

NARRATIVE: CASE EVENT DATE: 20200803
